FAERS Safety Report 25643192 (Version 1)
Quarter: 2025Q3

REPORT INFORMATION
  Report Type: Spontaneous
  Country: EU (occurrence: EU)
  Receive Date: 20250805
  Receipt Date: 20250805
  Transmission Date: 20251021
  Serious: Yes (Hospitalization, Other)
  Sender: CELLTRION
  Company Number: None

PATIENT

DRUGS (4)
  1. RITUXIMAB [Interacting]
     Active Substance: RITUXIMAB
     Indication: Rheumatoid arthritis
     Route: 042
     Dates: start: 2013, end: 20240314
  2. SALAZOPYRINE [Interacting]
     Active Substance: SULFASALAZINE
     Indication: Rheumatoid arthritis
     Route: 048
     Dates: start: 2013, end: 20240607
  3. METHOTREXATE [Interacting]
     Active Substance: METHOTREXATE
     Indication: Rheumatoid arthritis
     Dosage: 17.5 MG, 1/WEEK
     Route: 058
     Dates: start: 2013, end: 20240612
  4. OTEZLA [Interacting]
     Active Substance: APREMILAST
     Indication: Behcet^s syndrome
     Route: 048
     Dates: start: 2014, end: 20240612

REACTIONS (6)
  - Immunosuppression [Recovering/Resolving]
  - Hypogammaglobulinaemia [Recovering/Resolving]
  - Pneumonia [Recovered/Resolved]
  - Respiratory tract infection [Recovered/Resolved]
  - Sinusitis [Recovered/Resolved]
  - Intentional product use issue [Unknown]

NARRATIVE: CASE EVENT DATE: 20240325
